FAERS Safety Report 24941844 (Version 1)
Quarter: 2025Q1

REPORT INFORMATION
  Report Type: Report from Study
  Country: GB (occurrence: GB)
  Receive Date: 20250207
  Receipt Date: 20250207
  Transmission Date: 20250409
  Serious: Yes (Other)
  Sender: ABBVIE
  Company Number: GB-ABBVIE-6118551

PATIENT
  Sex: Female

DRUGS (1)
  1. HUMIRA [Suspect]
     Active Substance: ADALIMUMAB
     Indication: Psoriatic arthropathy
     Dosage: HUMIRA 40MG/0.4ML SOLUTION FOR INJECTION PRE-FILLED PENS (ABBVIE LTD) 2 PRE-FILLED ?DISPOSABLE IN...
     Route: 058

REACTIONS (1)
  - Lung disorder [Unknown]
